FAERS Safety Report 8966979 (Version 3)
Quarter: 2013Q2

REPORT INFORMATION
  Report Type: Spontaneous
  Country: US (occurrence: US)
  Receive Date: 20121217
  Receipt Date: 20130423
  Transmission Date: 20140414
  Serious: Yes (Hospitalization, Other)
  Sender: FDA-Public Use
  Company Number: US-ELI_LILLY_AND_COMPANY-US201212002632

PATIENT
  Age: 59 Year
  Sex: Female
  Weight: 93.42 kg

DRUGS (2)
  1. ZYPREXA [Suspect]
     Indication: SLEEP DISORDER
     Dosage: 5 MG, OTHER
     Route: 048
     Dates: start: 20110607
  2. ZYPREXA [Suspect]
     Dosage: 10 MG, OTHER
     Route: 048

REACTIONS (7)
  - Femoral neck fracture [Recovered/Resolved]
  - Fall [Recovered/Resolved]
  - Haemoglobin decreased [Unknown]
  - Haemorrhage [Unknown]
  - Neuropathy peripheral [Unknown]
  - Blood glucose increased [Unknown]
  - Off label use [Unknown]
